FAERS Safety Report 19376373 (Version 1)
Quarter: 2021Q2

REPORT INFORMATION
  Report Type: Spontaneous
  Country: US (occurrence: US)
  Receive Date: 20210604
  Receipt Date: 20210604
  Transmission Date: 20210717
  Serious: No
  Sender: FDA-Public Use
  Company Number: US-THERAPEUTICSMD-2021TMD01119

PATIENT
  Age: 44 Year
  Sex: Female
  Weight: 61.22 kg

DRUGS (1)
  1. ANNOVERA [Suspect]
     Active Substance: ETHINYL ESTRADIOL\SEGESTERONE ACETATE
     Indication: CONTRACEPTION
     Dosage: 1 RING, INSERTED FOR 21 DAYS, THEN REMOVED UNTIL SHE GETS HER PERIOD AND THEN SHE PUTS IT BACK IN
     Route: 067
     Dates: start: 20210216

REACTIONS (5)
  - Nausea [Recovered/Resolved]
  - Headache [Recovered/Resolved]
  - Dizziness [Recovered/Resolved]
  - Abdominal distension [Recovered/Resolved]
  - Fluid retention [Recovered/Resolved]

NARRATIVE: CASE EVENT DATE: 202102
